FAERS Safety Report 4999329-8 (Version None)
Quarter: 2006Q2

REPORT INFORMATION
  Report Type: 
  Country: None (occurrence: None)
  Receive Date: 20060509
  Receipt Date: 20060509
  Transmission Date: 20061013
  Serious: Yes (Other)
  Sender: FDA-Public Use
  Company Number: None

PATIENT
  Age: 45 Year
  Sex: Female
  Weight: 53.5244 kg

DRUGS (1)
  1. MOXIFLOXACIN HCL [Suspect]
     Indication: CHRONIC SINUSITIS
     Dosage: ONE DAILY DAILY PO
     Route: 048
     Dates: start: 20060425, end: 20060505

REACTIONS (4)
  - CYSTITIS NONINFECTIVE [None]
  - MICTURITION URGENCY [None]
  - POLLAKIURIA [None]
  - TENDERNESS [None]
